FAERS Safety Report 15474974 (Version 1)
Quarter: 2018Q4

REPORT INFORMATION
  Report Type: Spontaneous
  Country: US (occurrence: US)
  Receive Date: 20181008
  Receipt Date: 20181008
  Transmission Date: 20190205
  Serious: Yes (Hospitalization)
  Sender: FDA-Public Use
  Company Number: US-TEVA-2018-US-961735

PATIENT
  Age: 57 Year
  Sex: Female

DRUGS (6)
  1. VANCOMYCIN [Suspect]
     Active Substance: VANCOMYCIN
     Indication: KNEE ARTHROPLASTY
     Dosage: 9 G; IMPREGNATED CEMENT SPACER IMPLANTATION
     Route: 065
  2. VANCOMYCIN [Suspect]
     Active Substance: VANCOMYCIN
     Route: 042
  3. PIPERACILLIN/TAZOBACTAM [Suspect]
     Active Substance: PIPERACILLIN SODIUM\TAZOBACTAM SODIUM
     Indication: PRODUCT USED FOR UNKNOWN INDICATION
     Route: 041
  4. PALACOS R+G [Suspect]
     Active Substance: GENTAMICIN
     Indication: KNEE ARTHROPLASTY
     Dosage: 1.5G; IMPREGNATED CEMENT SPACER IMPLANTATION
     Route: 065
  5. TOBRAMYCIN. [Suspect]
     Active Substance: TOBRAMYCIN
     Indication: KNEE ARTHROPLASTY
     Dosage: 7.2 G; IMPREGNATED CEMENT SPACER IMPLANTATION
     Route: 065
  6. IBUPROFEN. [Suspect]
     Active Substance: IBUPROFEN
     Indication: PAIN
     Dosage: A TOTAL OF 3 DOSES; AS NEEDED
     Route: 065

REACTIONS (3)
  - Drug level increased [Unknown]
  - Renal tubular necrosis [Recovering/Resolving]
  - Acute kidney injury [Recovering/Resolving]
